FAERS Safety Report 5307504-8 (Version None)
Quarter: 2007Q2

REPORT INFORMATION
  Report Type: 
  Country: None (occurrence: None)
  Receive Date: 20070425
  Receipt Date: 20070414
  Transmission Date: 20071010
  Serious: Yes (Other)
  Sender: FDA-Public Use
  Company Number: MX-ELI_LILLY_AND_COMPANY-MX200703002772

PATIENT
  Age: 60 Year
  Sex: Female

DRUGS (2)
  1. CYMBALTA [Suspect]
     Indication: DEPRESSION
     Dosage: 60 MG, DAILY (1/D)
     Route: 048
  2. RESERPINE [Concomitant]
     Indication: HYPERTENSION
     Dosage: UNK UNK, DAILY (1/D)

REACTIONS (2)
  - HEADACHE [None]
  - HYPERTENSIVE CRISIS [None]
